FAERS Safety Report 7067457-1 (Version None)
Quarter: 2010Q4

REPORT INFORMATION
  Report Type: 
  Country: None (occurrence: None)
  Receive Date: 20101026
  Receipt Date: 20101026
  Transmission Date: 20110411
  Serious: Yes (Hospitalization)
  Sender: FDA-Public Use
  Company Number: None

PATIENT
  Age: 55 Year
  Sex: Female
  Weight: 89.1 kg

DRUGS (1)
  1. PLAQUENIL [Suspect]
     Indication: RHEUMATOID ARTHRITIS
     Dosage: PLAQUENIL 200MG BID ORAL
     Route: 048

REACTIONS (9)
  - ARTHRALGIA [None]
  - NAUSEA [None]
  - OROPHARYNGEAL PAIN [None]
  - PAIN [None]
  - RASH GENERALISED [None]
  - RASH MACULAR [None]
  - RASH PRURITIC [None]
  - SKIN WARM [None]
  - STOMATITIS [None]
